FAERS Safety Report 19859881 (Version 1)
Quarter: 2021Q3

REPORT INFORMATION
  Report Type: Spontaneous
  Country: US (occurrence: US)
  Receive Date: 20210920
  Receipt Date: 20210920
  Transmission Date: 20211014
  Serious: No
  Sender: FDA-Public Use
  Company Number: None

PATIENT
  Age: 54 Year
  Sex: Male
  Weight: 83 kg

DRUGS (13)
  1. CALCIUM 600MG [Concomitant]
  2. ELIGARD [Concomitant]
     Active Substance: LEUPROLIDE ACETATE
  3. ACETAMINOPHEN 500MG [Concomitant]
     Active Substance: ACETAMINOPHEN
  4. PREDNISONE 5MG [Concomitant]
     Active Substance: PREDNISONE
  5. MAGNESIUM 500MG [Concomitant]
  6. CLARITIN [Concomitant]
     Active Substance: LORATADINE
  7. MULTIVITAMIN [Concomitant]
     Active Substance: VITAMINS
  8. VITAMIN D 2000IU [Concomitant]
  9. MOTRIN IB 200MG [Concomitant]
  10. ASPIRIN 81MG [Concomitant]
     Active Substance: ASPIRIN
  11. ABIRATERONE. [Suspect]
     Active Substance: ABIRATERONE ACETATE
     Indication: PROSTATE CANCER
     Route: 048
     Dates: start: 20210409
  12. METHOCARBAMOL 500MG [Concomitant]
  13. SILDENAFIL CITRATE 20MG [Concomitant]
     Active Substance: SILDENAFIL CITRATE

REACTIONS (1)
  - Hypertension [None]

NARRATIVE: CASE EVENT DATE: 20210920
